FAERS Safety Report 8104637 (Version 2)
Quarter: 2013Q1

REPORT INFORMATION
  Report Type: Spontaneous
  Country: US (occurrence: US)
  Receive Date: 20110824
  Receipt Date: 20130226
  Transmission Date: 20140127
  Serious: Yes (Death)
  Sender: FDA-Public Use
  Company Number: PHEH2011US02212

PATIENT
  Sex: Female

DRUGS (1)
  1. RECLAST [Suspect]
     Indication: OSTEOPOROSIS
     Dosage: 5 MG, ONCE A YEARLY
     Route: 042
     Dates: start: 20101109

REACTIONS (4)
  - Metastatic neoplasm [Fatal]
  - Impaired gastric emptying [Fatal]
  - Chronic respiratory failure [Fatal]
  - Laryngeal cancer [Fatal]
